FAERS Safety Report 26122398 (Version 1)
Quarter: 2025Q4

REPORT INFORMATION
  Report Type: Spontaneous
  Country: US (occurrence: None)
  Receive Date: 20251204
  Receipt Date: 20251204
  Transmission Date: 20260117
  Serious: No
  Sender: FDA-CTU
  Company Number: None

PATIENT

DRUGS (9)
  1. METFORMIN [Suspect]
     Active Substance: METFORMIN HYDROCHLORIDE
     Dosage: STRENGTH:  500, 850, 1000MG
  2. TRULICITY [Suspect]
     Active Substance: DULAGLUTIDE
  3. FARXIGA [Suspect]
     Active Substance: DAPAGLIFLOZIN PROPANEDIOL
  4. METFORMIN HYDROCHLORIDE\SITAGLIPTIN [Suspect]
     Active Substance: METFORMIN HYDROCHLORIDE\SITAGLIPTIN
  5. VICTOZA [Suspect]
     Active Substance: LIRAGLUTIDE
  6. JARDIANCE [Suspect]
     Active Substance: EMPAGLIFLOZIN
  7. JANUVIA [Suspect]
     Active Substance: SITAGLIPTIN PHOSPHATE
  8. GLIMEPIRIDE [Suspect]
     Active Substance: GLIMEPIRIDE
  9. GLIPIZIDE [Suspect]
     Active Substance: GLIPIZIDE

REACTIONS (2)
  - Treatment failure [None]
  - Drug hypersensitivity [None]

NARRATIVE: CASE EVENT DATE: 20251204
